FAERS Safety Report 5746041-3 (Version None)
Quarter: 2008Q2

REPORT INFORMATION
  Report Type: 
  Country: None (occurrence: None)
  Receive Date: 20080522
  Receipt Date: 20080512
  Transmission Date: 20081010
  Serious: Yes (Other)
  Sender: FDA-Public Use
  Company Number: JP-JNJFOC-20060205019

PATIENT
  Sex: Male
  Weight: 54 kg

DRUGS (25)
  1. REMICADE [Suspect]
     Route: 042
  2. REMICADE [Suspect]
     Route: 042
  3. REMICADE [Suspect]
     Route: 042
  4. REMICADE [Suspect]
     Route: 042
  5. REMICADE [Suspect]
     Route: 042
  6. REMICADE [Suspect]
     Route: 042
  7. REMICADE [Suspect]
     Route: 042
  8. REMICADE [Suspect]
     Route: 042
  9. REMICADE [Suspect]
     Route: 042
  10. REMICADE [Suspect]
     Route: 042
  11. REMICADE [Suspect]
     Dosage: 3 MG/KG
     Route: 042
  12. REMICADE [Suspect]
     Indication: RHEUMATOID ARTHRITIS
     Dosage: 3 MG/KG
     Route: 042
  13. NOVORAPID [Suspect]
     Indication: DIABETES MELLITUS
     Route: 058
  14. LANTUS [Suspect]
     Indication: DIABETES MELLITUS
     Route: 058
  15. AZELNIDIPINE [Concomitant]
     Indication: HYPERTENSION
     Route: 048
  16. VOLTAREN [Concomitant]
     Indication: RHEUMATOID ARTHRITIS
     Dosage: ROUTE=^PR^
     Route: 054
  17. OMEPRAZOLE [Concomitant]
     Route: 048
  18. ONEALFA [Concomitant]
     Route: 048
  19. PREDONINE [Concomitant]
  20. RHEUMATREX [Concomitant]
     Route: 048
  21. RHEUMATREX [Concomitant]
     Route: 048
  22. RHEUMATREX [Concomitant]
     Route: 048
  23. RHEUMATREX [Concomitant]
     Indication: RHEUMATOID ARTHRITIS
     Route: 048
  24. FOLIAMIN [Concomitant]
     Indication: PROPHYLAXIS
     Route: 048
  25. CYANOCOBALAMIN [Concomitant]
     Indication: HYPOAESTHESIA
     Route: 048

REACTIONS (1)
  - HYPOGLYCAEMIA [None]
